FAERS Safety Report 10250109 (Version 1)
Quarter: 2014Q2

REPORT INFORMATION
  Report Type: Spontaneous
  Country: US (occurrence: US)
  Receive Date: 20140620
  Receipt Date: 20140620
  Transmission Date: 20141212
  Serious: No
  Sender: FDA-Public Use
  Company Number: US-BRISTOL-MYERS SQUIBB COMPANY-20669842

PATIENT
  Age: 52 Year
  Sex: Male

DRUGS (6)
  1. ELIQUIS [Suspect]
  2. BYSTOLIC [Concomitant]
  3. BENICAR [Concomitant]
  4. DIGOXIN [Concomitant]
  5. FAMOTIDINE [Concomitant]
  6. CHLORTALIDONE [Concomitant]

REACTIONS (2)
  - Skin burning sensation [Recovered/Resolved]
  - Hyperhidrosis [Recovered/Resolved]
